FAERS Safety Report 10413323 (Version 2)
Quarter: 2014Q3

REPORT INFORMATION
  Report Type: Spontaneous
  Country: US (occurrence: US)
  Receive Date: 20140827
  Receipt Date: 20140827
  Transmission Date: 20150326
  Serious: Yes (Hospitalization)
  Sender: FDA-Public Use
  Company Number: US-GLAXOSMITHKLINE-A0709950A

PATIENT
  Sex: Male
  Weight: 117.3 kg

DRUGS (3)
  1. CRESTOR [Concomitant]
     Active Substance: ROSUVASTATIN CALCIUM
     Dates: start: 200010
  2. AVANDIA [Suspect]
     Active Substance: ROSIGLITAZONE MALEATE
     Indication: TYPE 2 DIABETES MELLITUS
     Dosage: 4MG PER DAY
     Route: 048
     Dates: start: 200010, end: 200705
  3. ALTACE [Concomitant]
     Active Substance: RAMIPRIL
     Dates: start: 200010

REACTIONS (7)
  - Coronary artery disease [Unknown]
  - Cardiac failure congestive [Unknown]
  - Myocardial infarction [Recovered/Resolved]
  - Arteriosclerosis [Unknown]
  - Ischaemia [Unknown]
  - Acute coronary syndrome [Unknown]
  - Pericardial effusion [Unknown]
